FAERS Safety Report 26073343 (Version 1)
Quarter: 2025Q4

REPORT INFORMATION
  Report Type: Spontaneous
  Country: US (occurrence: US)
  Receive Date: 20251121
  Receipt Date: 20251121
  Transmission Date: 20260117
  Serious: No
  Sender: OTSUKA
  Company Number: US-MMM-Otsuka-1M247UAX

PATIENT
  Sex: Male
  Weight: 122.47 kg

DRUGS (1)
  1. NUEDEXTA [Suspect]
     Active Substance: DEXTROMETHORPHAN HYDROBROMIDE\QUINIDINE SULFATE
     Indication: Affect lability
     Dosage: 1 DF (20-10 MG) BID (ONE IN THE MORNING AND ONE AT NIGHT)
     Route: 065
     Dates: start: 2024

REACTIONS (1)
  - Disease recurrence [Unknown]
